FAERS Safety Report 6139045-2 (Version None)
Quarter: 2009Q1

REPORT INFORMATION
  Report Type: 
  Country: None (occurrence: None)
  Receive Date: 20090331
  Receipt Date: 20090326
  Transmission Date: 20090719
  Serious: Yes (Disabling, Other)
  Sender: FDA-Public Use
  Company Number: FR-AMGEN-UK334626

PATIENT
  Sex: Female
  Weight: 59 kg

DRUGS (3)
  1. KINERET [Suspect]
     Indication: JUVENILE ARTHRITIS
     Route: 065
     Dates: start: 20041117
  2. CORTANCYL [Suspect]
  3. UNSPECIFIED GROWTH HORMONE [Concomitant]

REACTIONS (9)
  - CATARACT [None]
  - HYPERMETROPIA [None]
  - INFLAMMATION [None]
  - INJECTION SITE ERYTHEMA [None]
  - INJECTION SITE PAIN [None]
  - LIPOATROPHY [None]
  - SKIN CHAPPED [None]
  - VISUAL ACUITY REDUCED TRANSIENTLY [None]
  - VISUAL FIELD DEFECT [None]
